FAERS Safety Report 7063196-1 (Version None)
Quarter: 2010Q4

REPORT INFORMATION
  Report Type: 
  Country: None (occurrence: None)
  Receive Date: 20101026
  Receipt Date: 20100512
  Transmission Date: 20110411
  Serious: No
  Sender: FDA-Public Use
  Company Number: US-PFIZER INC-2010060579

PATIENT
  Sex: Male
  Weight: 72.562 kg

DRUGS (5)
  1. LIPITOR [Suspect]
     Indication: BLOOD CHOLESTEROL INCREASED
     Dosage: 40 MG, DAILY
     Route: 048
     Dates: start: 20020101
  2. COZAAR [Concomitant]
     Dosage: UNK
  3. METOPROLOL [Concomitant]
     Dosage: 25 MG, UNK
  4. ACETYLSALICYLIC ACID [Concomitant]
     Dosage: UNK, DAILY
  5. PLAVIX [Concomitant]
     Dosage: 75 MG, UNK

REACTIONS (3)
  - BODY HEIGHT DECREASED [None]
  - DYSPHAGIA [None]
  - FOREIGN BODY [None]
